FAERS Safety Report 21292082 (Version 6)
Quarter: 2023Q2

REPORT INFORMATION
  Report Type: Spontaneous
  Country: CN (occurrence: CN)
  Receive Date: 20220904
  Receipt Date: 20230620
  Transmission Date: 20230722
  Serious: Yes (Death, Hospitalization, Other)
  Sender: FDA-Public Use
  Company Number: CN-CELGENE-CHN-20200309377

PATIENT
  Age: 70 Year
  Sex: Male
  Weight: 48.0 kg

DRUGS (29)
  1. ABRAXANE [Suspect]
     Active Substance: PACLITAXEL
     Indication: Non-small cell lung cancer
     Route: 042
     Dates: start: 20191202, end: 20191202
  2. ABRAXANE [Suspect]
     Active Substance: PACLITAXEL
     Route: 042
     Dates: start: 20191217, end: 20191217
  3. ABRAXANE [Suspect]
     Active Substance: PACLITAXEL
     Route: 042
     Dates: start: 20191224, end: 20191224
  4. ABRAXANE [Suspect]
     Active Substance: PACLITAXEL
     Route: 042
     Dates: start: 20200109, end: 20200109
  5. ABRAXANE [Suspect]
     Active Substance: PACLITAXEL
     Dosage: 105 MILLIGRAM
     Route: 042
     Dates: start: 20200116, end: 20200116
  6. ABRAXANE [Suspect]
     Active Substance: PACLITAXEL
     Route: 042
     Dates: start: 20200222, end: 20200222
  7. ABRAXANE [Suspect]
     Active Substance: PACLITAXEL
     Route: 042
     Dates: start: 20200229, end: 20200229
  8. ABRAXANE [Suspect]
     Active Substance: PACLITAXEL
     Route: 042
     Dates: start: 20200307, end: 20200307
  9. ABRAXANE [Suspect]
     Active Substance: PACLITAXEL
     Dates: end: 20230512
  10. CARBOPLATIN [Suspect]
     Active Substance: CARBOPLATIN
     Indication: Non-small cell lung cancer
     Dosage: DAY 1, DAY 8 AND DAY 15 OF EACH CYCLE
     Route: 042
     Dates: start: 20191125, end: 20191125
  11. CARBOPLATIN [Suspect]
     Active Substance: CARBOPLATIN
     Route: 042
     Dates: start: 20191217, end: 20191217
  12. CARBOPLATIN [Suspect]
     Active Substance: CARBOPLATIN
     Route: 042
     Dates: start: 20200109
  13. CARBOPLATIN [Suspect]
     Active Substance: CARBOPLATIN
     Route: 042
     Dates: start: 20200222, end: 20200222
  14. SERPLULIMAB [Suspect]
     Active Substance: SERPLULIMAB
     Indication: Squamous cell carcinoma of lung
     Dosage: 183 MILLIGRAM
     Route: 042
     Dates: start: 20191125, end: 20191125
  15. SERPLULIMAB [Suspect]
     Active Substance: SERPLULIMAB
     Indication: Non-small cell lung cancer
     Dosage: 182 MILLIGRAM
     Route: 042
     Dates: start: 20191217, end: 20191217
  16. SERPLULIMAB [Suspect]
     Active Substance: SERPLULIMAB
     Dosage: 216 MILLIGRAM
     Route: 042
     Dates: start: 20200109, end: 20200109
  17. SERPLULIMAB [Suspect]
     Active Substance: SERPLULIMAB
     Dosage: 216 MILLIGRAM
     Route: 042
     Dates: start: 20200222, end: 20200222
  18. SERPLULIMAB [Suspect]
     Active Substance: SERPLULIMAB
     Dosage: FREQUENCY TEXT: NOT PROVIDED. 4.5MG/KG
     Route: 042
     Dates: start: 20200515, end: 20200605
  19. SERPLULIMAB [Suspect]
     Active Substance: SERPLULIMAB
     Dosage: RECEIVED 14 CYCLES.Q3W
     Route: 041
     Dates: start: 20200709, end: 20210409
  20. SERPLULIMAB [Suspect]
     Active Substance: SERPLULIMAB
     Dosage: RECEIVED 11 CYCLES.Q3W
     Route: 041
     Dates: start: 20210429, end: 20211124
  21. SERPLULIMAB [Suspect]
     Active Substance: SERPLULIMAB
     Dosage: RECEIVED 11 CYCLES.Q3W
     Route: 041
     Dates: start: 20220922, end: 20221013
  22. SERPLULIMAB [Suspect]
     Active Substance: SERPLULIMAB
     Dosage: RECEIVED 11 CYCLES.Q3W
     Route: 041
     Dates: start: 20230215, end: 20230309
  23. MEGESTROL [Concomitant]
     Active Substance: MEGESTROL
     Indication: Decreased appetite
     Dosage: 160 MILLIGRAM
     Route: 048
     Dates: start: 20200308, end: 20200314
  24. DOXOFYLLINE [Concomitant]
     Active Substance: DOXOFYLLINE
     Indication: Dyspnoea
     Dosage: 0.2 GRAM
     Route: 048
     Dates: start: 20200308, end: 20200314
  25. DOXOFYLLINE [Concomitant]
     Active Substance: DOXOFYLLINE
     Dosage: 0.2 GRAM
     Route: 048
     Dates: start: 20191023, end: 20230222
  26. EBASTINE [Concomitant]
     Active Substance: EBASTINE
     Indication: Obstructive airways disorder
     Dosage: 10 MILLIGRAM
     Route: 048
     Dates: start: 20191023, end: 20200314
  27. BATILOL [Concomitant]
     Active Substance: BATILOL
     Indication: Leukopenia
     Dosage: 10 MILLIGRAM
     Route: 048
     Dates: start: 20200308, end: 20200314
  28. BUDESONIDE [Concomitant]
     Active Substance: BUDESONIDE
     Indication: Product used for unknown indication
     Dosage: ONGOING
     Dates: start: 20210701
  29. IPRATROPIUM BROMIDE [Concomitant]
     Active Substance: IPRATROPIUM BROMIDE\IPRATROPIUM BROMIDE ANHYDROUS
     Indication: Product used for unknown indication
     Dates: start: 20210701, end: 20230320

REACTIONS (5)
  - Cor pulmonale chronic [Not Recovered/Not Resolved]
  - Chronic obstructive pulmonary disease [Recovered/Resolved with Sequelae]
  - Pneumonia [Recovered/Resolved]
  - Hyponatraemia [Recovering/Resolving]
  - Non-small cell lung cancer [Fatal]

NARRATIVE: CASE EVENT DATE: 20200314
